FAERS Safety Report 22811773 (Version 4)
Quarter: 2023Q4

REPORT INFORMATION
  Report Type: Report from Study
  Country: US (occurrence: US)
  Receive Date: 20230810
  Receipt Date: 20231202
  Transmission Date: 20240110
  Serious: Yes (Hospitalization)
  Sender: FDA-Public Use
  Company Number: US-ACADIA PHARMACEUTICALS INC.-ACA-2023-TRF-002995

PATIENT
  Age: 22 Year
  Sex: Female

DRUGS (10)
  1. DAYBUE [Suspect]
     Active Substance: TROFINETIDE
     Indication: Rett syndrome
     Dosage: 10 MILLILITER, BID
  2. DAYBUE [Suspect]
     Active Substance: TROFINETIDE
     Dosage: 60 MILLILITER, BID, VIA G TUBE
     Dates: start: 20230606, end: 20230710
  3. DAYBUE [Suspect]
     Active Substance: TROFINETIDE
     Dosage: 40 MILLILITER, BID, VIA G TUBE
  4. DAYBUE [Suspect]
     Active Substance: TROFINETIDE
     Dosage: 5 MILLILITER, BID VIA G TUBE
     Dates: start: 20230821
  5. DAYBUE [Suspect]
     Active Substance: TROFINETIDE
     Dosage: 30 MILLILITER, BID VIA G TUBE
  6. BANZEL [Concomitant]
     Active Substance: RUFINAMIDE
  7. FAMOTIDINE [Concomitant]
     Active Substance: FAMOTIDINE
  8. EPIDIOLEX [Concomitant]
     Active Substance: CANNABIDIOL
     Dosage: SOLUTION
  9. CULTURELLE [Concomitant]
     Active Substance: LACTOBACILLUS RHAMNOSUS
  10. IBUPROFEN [Concomitant]
     Active Substance: IBUPROFEN

REACTIONS (6)
  - Illness [Unknown]
  - Screaming [Not Recovered/Not Resolved]
  - Screaming [Recovered/Resolved]
  - Product dose omission issue [Recovered/Resolved]
  - Underdose [Not Recovered/Not Resolved]
  - Diarrhoea [Unknown]

NARRATIVE: CASE EVENT DATE: 20230710
